FAERS Safety Report 12184020 (Version 2)
Quarter: 2016Q2

REPORT INFORMATION
  Report Type: Spontaneous
  Country: RU (occurrence: RU)
  Receive Date: 20160316
  Receipt Date: 20160411
  Transmission Date: 20160815
  Serious: Yes (Other)
  Sender: FDA-Public Use
  Company Number: PHHY2016RU033862

PATIENT
  Age: 37 Year
  Sex: Female

DRUGS (6)
  1. DEXAMETHASONE. [Suspect]
     Active Substance: DEXAMETHASONE
     Indication: ABORTION SPONTANEOUS
     Dosage: UNK
     Route: 065
  2. TEGRETOL CR [Suspect]
     Active Substance: CARBAMAZEPINE
     Indication: EPILEPSY
     Dosage: 1200 MG, QD
     Route: 065
  3. FOLIC ACID. [Suspect]
     Active Substance: FOLIC ACID
     Indication: PRODUCT USED FOR UNKNOWN INDICATION
     Dosage: 4 MG, QD
     Route: 065
  4. TEGRETOL CR [Suspect]
     Active Substance: CARBAMAZEPINE
     Dosage: 300 MG, QD
     Route: 065
  5. FRAXIPARINE [Suspect]
     Active Substance: NADROPARIN CALCIUM
     Indication: ISCHAEMIC STROKE
     Dosage: UNK
     Route: 065
  6. ACTOVEGIN [Suspect]
     Active Substance: UNSPECIFIED INGREDIENT
     Indication: ABORTION SPONTANEOUS
     Dosage: UNK
     Route: 065

REACTIONS (3)
  - Premature delivery [Unknown]
  - Partial seizures [Unknown]
  - Maternal exposure during pregnancy [Unknown]
